FAERS Safety Report 5977164-1 (Version None)
Quarter: 2008Q4

REPORT INFORMATION
  Report Type: 
  Country: None (occurrence: None)
  Receive Date: 20081203
  Receipt Date: 20081126
  Transmission Date: 20090506
  Serious: Yes (Hospitalization)
  Sender: FDA-Public Use
  Company Number: ES-ELI_LILLY_AND_COMPANY-ES200811006182

PATIENT
  Age: 78 Year
  Sex: Female
  Weight: 88 kg

DRUGS (7)
  1. FORTEO [Suspect]
     Indication: OSTEOPOROSIS
     Dosage: 20 UG, UNKNOWN
     Route: 058
     Dates: start: 20080705
  2. METHOTREXATE [Concomitant]
     Indication: RHEUMATOID ARTHRITIS
     Dosage: UNK, UNKNOWN
     Route: 065
  3. CORTISONE ACETATE TAB [Concomitant]
     Indication: ARRHYTHMIA
     Dosage: UNK, UNKNOWN
     Route: 065
  4. CHLORMEZANONE [Suspect]
     Indication: ASTHMA
     Dosage: UNK, UNKNOWN
     Route: 065
  5. VENTOLIN [Concomitant]
     Indication: ASTHMA
     Dosage: UNK, UNKNOWN
     Route: 065
  6. URBASON /00049601/ [Concomitant]
     Indication: ASTHMA
     Dosage: UNK, UNKNOWN
     Route: 065
  7. NOVOPROFEN [Concomitant]
     Dosage: UNK, UNKNOWN
     Route: 065

REACTIONS (9)
  - ARRHYTHMIA [None]
  - CHEST PAIN [None]
  - DIZZINESS [None]
  - DYSPNOEA [None]
  - FATIGUE [None]
  - HYPERHIDROSIS [None]
  - SUFFOCATION FEELING [None]
  - TACHYCARDIA [None]
  - TREMOR [None]
